FAERS Safety Report 9202082 (Version 2)
Quarter: 2013Q1

REPORT INFORMATION
  Report Type: Spontaneous
  Country: FR (occurrence: None)
  Receive Date: 20130325
  Receipt Date: 20130329
  Transmission Date: 20140127
  Serious: Yes (Hospitalization)
  Sender: FDA-Public Use
  Company Number: 2013035093

PATIENT
  Age: 59 Year
  Sex: Female

DRUGS (2)
  1. PRIVIGEN (IMMUNE GLOBULIN INTRAVENOUS (HUMAN) 10% LIQUID) [Suspect]
     Indication: PROPHYLAXIS AGAINST TRANSPLANT REJECTION
     Dosage: FOR 1ST COURSE  (NOT OTHERWISE SPECIFIED)
     Route: 042
     Dates: start: 20121108, end: 20121109
  2. RITUXIMAB (RITUXIMAB) [Concomitant]

REACTIONS (5)
  - Hyperviscosity syndrome [None]
  - Headache [None]
  - Hypertension [None]
  - Hepatocellular injury [None]
  - Pruritus [None]
